FAERS Safety Report 6443595-9 (Version None)
Quarter: 2009Q4

REPORT INFORMATION
  Report Type: 
  Country: None (occurrence: None)
  Receive Date: 20091117
  Receipt Date: 20091106
  Transmission Date: 20100525
  Serious: Yes (Other)
  Sender: FDA-Public Use
  Company Number: GB-PFIZER INC-2009294078

PATIENT
  Age: 63 Year
  Sex: Male

DRUGS (1)
  1. CHAMPIX [Suspect]
     Dosage: 0.5 MG, 1X/DAY
     Route: 048
     Dates: start: 20091022, end: 20091022

REACTIONS (3)
  - NON-CARDIAC CHEST PAIN [None]
  - PAIN [None]
  - PAIN IN JAW [None]
